FAERS Safety Report 5715737-1 (Version None)
Quarter: 2008Q2

REPORT INFORMATION
  Report Type: 
  Country: None (occurrence: None)
  Receive Date: 20080423
  Receipt Date: 20080423
  Transmission Date: 20081010
  Serious: Yes (Hospitalization)
  Sender: FDA-Public Use
  Company Number: None

PATIENT
  Sex: Female
  Weight: 57.7 kg

DRUGS (2)
  1. CYCLOPHOSPHAMIDE [Suspect]
     Dosage: 954 MG
  2. DOXORUBICIN HYDROCHLORIDE [Suspect]
     Dosage: 95 MG

REACTIONS (8)
  - ANAEMIA [None]
  - CAROTID ARTERY STENOSIS [None]
  - FALL [None]
  - FATIGUE [None]
  - LOSS OF CONSCIOUSNESS [None]
  - NEUTROPENIA [None]
  - SYNCOPE [None]
  - WEIGHT DECREASED [None]
